FAERS Safety Report 6966800-9 (Version None)
Quarter: 2010Q3

REPORT INFORMATION
  Report Type: 
  Country: None (occurrence: None)
  Receive Date: 20100906
  Receipt Date: 20100823
  Transmission Date: 20110219
  Serious: Yes (Hospitalization, Other)
  Sender: FDA-Public Use
  Company Number: PHHY2010CN56728

PATIENT
  Age: 45 Year
  Sex: Male

DRUGS (7)
  1. CARBAMAZEPINE [Suspect]
     Indication: TRIGEMINAL NEURALGIA
     Dosage: 0.1 G, TID
  2. CEFOTAXIME SODIUM [Concomitant]
     Dosage: 4.0 GM
  3. DEXAMETHASONE [Concomitant]
     Dosage: 15 MG
  4. CALCIUM GLUCONATE [Concomitant]
     Dosage: 10 ML
     Route: 048
  5. CETIRIZINE HCL [Concomitant]
     Dosage: 10 MG
  6. CALAMINE LOTION [Concomitant]
  7. DOBELL'S SOLUTION [Concomitant]

REACTIONS (13)
  - ACNE [None]
  - ANGINA PECTORIS [None]
  - BODY TEMPERATURE INCREASED [None]
  - CHEST PAIN [None]
  - DROOLING [None]
  - DRUG HYPERSENSITIVITY [None]
  - DYSPHAGIA [None]
  - DYSPNOEA [None]
  - HEADACHE [None]
  - MOUTH ULCERATION [None]
  - PHARYNGEAL ULCERATION [None]
  - RASH [None]
  - WHITE BLOOD CELL COUNT INCREASED [None]
